FAERS Safety Report 7219613-7 (Version None)
Quarter: 2011Q1

REPORT INFORMATION
  Report Type: 
  Country: None (occurrence: None)
  Receive Date: 20110111
  Receipt Date: 20101230
  Transmission Date: 20110831
  Serious: Yes (Hospitalization)
  Sender: FDA-Public Use
  Company Number: US-ELI_LILLY_AND_COMPANY-US201012006679

PATIENT
  Sex: Male
  Weight: 96.599 kg

DRUGS (12)
  1. ASPIRIN [Concomitant]
     Indication: CARDIAC DISORDER
     Dosage: 81 MG, DAILY (1/D)
  2. CELEXA [Concomitant]
     Indication: ANTIDEPRESSANT THERAPY
     Dosage: 60 MG, DAILY (1/D)
  3. PEMETREXED [Suspect]
     Indication: LUNG ADENOCARCINOMA METASTATIC
     Dosage: 1075 MG, UNKNOWN
     Route: 042
     Dates: start: 20101213
  4. RISPERDAL [Concomitant]
     Indication: PSYCHOTIC DISORDER
     Dosage: 1 MG, DAILY (1/D)
  5. CRESTOR [Concomitant]
     Indication: HYPERLIPIDAEMIA
     Dosage: 5 MG, DAILY (1/D)
  6. DIGOXIN [Concomitant]
     Indication: CARDIAC FAILURE CONGESTIVE
     Dosage: 0.125 MG, DAILY (1/D)
  7. PACERONE [Concomitant]
     Indication: ARRHYTHMIA
     Dosage: 200 MG, 2/D
  8. CARBOPLATIN [Suspect]
     Indication: LUNG ADENOCARCINOMA METASTATIC
     Dosage: 726 MG, UNKNOWN
     Route: 042
     Dates: start: 20101213
  9. FLOMAX [Concomitant]
     Indication: BENIGN PROSTATIC HYPERPLASIA
  10. LASIX [Concomitant]
     Indication: OEDEMA
     Dosage: 10 MG, DAILY (1/D)
  11. DEPAKOTE [Concomitant]
     Indication: BIPOLAR DISORDER
     Dosage: 1000 MG, DAILY (1/D)
  12. REMERON [Concomitant]
     Indication: ANTIDEPRESSANT THERAPY
     Dosage: 15 MG, DAILY (1/D)

REACTIONS (2)
  - HAEMOPTYSIS [None]
  - THROMBOCYTOPENIA [None]
